FAERS Safety Report 15315474 (Version 1)
Quarter: 2018Q3

REPORT INFORMATION
  Report Type: Report from Study
  Country: BR (occurrence: BR)
  Receive Date: 20180824
  Receipt Date: 20180824
  Transmission Date: 20181010
  Serious: Yes (Other)
  Sender: FDA-Public Use
  Company Number: BR-JNJFOC-20180821257

PATIENT
  Age: 23 Year
  Sex: Male

DRUGS (2)
  1. INFLIXIMAB, RECOMBINANT [Suspect]
     Active Substance: INFLIXIMAB
     Indication: CROHN^S DISEASE
     Route: 042
     Dates: start: 201712
  2. INFLIXIMAB, RECOMBINANT [Suspect]
     Active Substance: INFLIXIMAB
     Indication: CROHN^S DISEASE
     Route: 042

REACTIONS (8)
  - Dermatitis [Not Recovered/Not Resolved]
  - Arthritis [Not Recovered/Not Resolved]
  - Gastrointestinal neoplasm [Unknown]
  - Visual impairment [Not Recovered/Not Resolved]
  - Off label use [Unknown]
  - Crohn^s disease [Not Recovered/Not Resolved]
  - Drug ineffective [Unknown]
  - Product use issue [Unknown]

NARRATIVE: CASE EVENT DATE: 201712
